FAERS Safety Report 21684356 (Version 1)
Quarter: 2022Q4

REPORT INFORMATION
  Report Type: Spontaneous
  Country: US (occurrence: None)
  Receive Date: 20221203
  Receipt Date: 20221203
  Transmission Date: 20230113
  Serious: Yes (unspecified)
  Sender: FDA-Public Use
  Company Number: None

PATIENT
  Sex: Male

DRUGS (1)
  1. EPCLUSA [Suspect]
     Active Substance: SOFOSBUVIR\VELPATASVIR
     Indication: Hepatitis C
     Dosage: OTHER QUANTITY : 400-100MG;?FREQUENCY : DAILY;?
     Route: 048
     Dates: start: 202210

REACTIONS (6)
  - Ear infection [None]
  - Pharyngeal erythema [None]
  - Erythema [None]
  - Pyrexia [None]
  - Infection [None]
  - Renal pain [None]
